FAERS Safety Report 18710181 (Version 3)
Quarter: 2021Q1

REPORT INFORMATION
  Report Type: Spontaneous
  Country: PL (occurrence: PL)
  Receive Date: 20210107
  Receipt Date: 20210129
  Transmission Date: 20210419
  Serious: Yes (Hospitalization, Other)
  Sender: FDA-Public Use
  Company Number: PL-AUROBINDO-AUR-APL-2021-000040

PATIENT
  Age: 84 Year
  Sex: Male
  Weight: 83 kg

DRUGS (11)
  1. PERINDOPRIL TABLET [Suspect]
     Active Substance: PERINDOPRIL
     Indication: PRODUCT USED FOR UNKNOWN INDICATION
     Dosage: 2.5 MILLIGRAM, ONCE A DAY
     Route: 065
  2. INDAPAMIDE. [Suspect]
     Active Substance: INDAPAMIDE
     Indication: PRODUCT USED FOR UNKNOWN INDICATION
     Dosage: 1.25 MILLIGRAM, ONCE A DAY
     Route: 065
  3. DOXAZOSIN [Concomitant]
     Active Substance: DOXAZOSIN MESYLATE
     Dosage: 2 MILLIGRAM, DAILY
     Route: 065
  4. METOPROLOL. [Concomitant]
     Active Substance: METOPROLOL
     Indication: ARRHYTHMIA
     Dosage: 50 MILLIGRAM, DAILY
     Route: 065
  5. DOXAZOSIN [Concomitant]
     Active Substance: DOXAZOSIN MESYLATE
     Indication: UROGENITAL DISORDER
     Dosage: 4 MILLIGRAM, DAILY, 0?0?1
     Route: 048
  6. METOPROLOL. [Concomitant]
     Active Substance: METOPROLOL
     Dosage: 25 MILLIGRAM, ONCE A DAY
     Route: 065
  7. ACETYLSALICYLIC ACID [Concomitant]
     Active Substance: ASPIRIN
     Indication: PRODUCT USED FOR UNKNOWN INDICATION
     Dosage: 75 MILLIGRAM, DAILY
     Route: 048
  8. AMLODIPINE;INDAPAMIDE;PERINDOPRIL [Suspect]
     Active Substance: AMLODIPINE\INDAPAMIDE\PERINDOPRIL
     Indication: HYPERTENSION
     Dosage: 1 DOSAGE FORM, ONCE A DAY(10/1.25/5 MG, 1?0?0)
     Route: 048
  9. ATORVASTATIN [Concomitant]
     Active Substance: ATORVASTATIN
     Indication: PRODUCT USED FOR UNKNOWN INDICATION
     Dosage: 40 MILLIGRAM, ONCE A DAY
     Route: 048
  10. POTASSIUM CHLORIDE. [Concomitant]
     Active Substance: POTASSIUM CHLORIDE
     Indication: PRODUCT USED FOR UNKNOWN INDICATION
     Dosage: 391 MILLIGRAM, ONCE A DAY
     Route: 048
  11. POTASSIUM CHLORIDE. [Concomitant]
     Active Substance: POTASSIUM CHLORIDE
     Dosage: 1 DOSAGE FORM, ONCE A DAY(1 TABLET DAILY)(391 MG K+ IONS)
     Route: 048

REACTIONS (14)
  - Blood pressure fluctuation [Recovered/Resolved]
  - Hypokalaemia [Recovered/Resolved]
  - Heart rate irregular [Recovered/Resolved]
  - General physical health deterioration [Recovered/Resolved]
  - Syncope [Recovered/Resolved]
  - Cardiac pacemaker insertion [Recovered/Resolved]
  - Presyncope [Recovered/Resolved]
  - Loss of consciousness [Recovered/Resolved]
  - Hypotonia [Recovered/Resolved]
  - Fall [Recovered/Resolved]
  - Mood altered [Recovered/Resolved]
  - Head injury [Recovered/Resolved]
  - Orthostatic hypotension [Recovered/Resolved]
  - Heart rate variability increased [Recovered/Resolved]

NARRATIVE: CASE EVENT DATE: 2020
